FAERS Safety Report 8297981-5 (Version None)
Quarter: 2012Q2

REPORT INFORMATION
  Report Type: 
  Country: None (occurrence: None)
  Receive Date: 20120419
  Receipt Date: 20101112
  Transmission Date: 20120825
  Serious: Yes (Hospitalization, Other)
  Sender: FDA-Public Use
  Company Number: US-BAYER-201028844NA

PATIENT
  Age: 26 Year
  Sex: Female
  Weight: 99.32 kg

DRUGS (9)
  1. DILAUDID [Concomitant]
     Dosage: UNK UNK, PRN
  2. YASMIN [Suspect]
     Indication: CONTRACEPTION
  3. CELEXA [Concomitant]
     Indication: DEPRESSION
     Dosage: 20 MG, UNK
     Route: 048
  4. YASMIN [Suspect]
     Indication: ACNE
     Dosage: UNK
     Route: 048
     Dates: end: 20091107
  5. IBUPROFEN [Concomitant]
     Indication: BACK PAIN
  6. PHENERGAN HCL [Concomitant]
     Dosage: UNK UNK, PRN
  7. YAZ [Suspect]
     Indication: ACNE
     Dosage: UNK
     Route: 048
     Dates: end: 20091107
  8. YAZ [Suspect]
     Indication: CONTRACEPTION
  9. IBUPROFEN [Concomitant]
     Indication: HEADACHE

REACTIONS (1)
  - PULMONARY EMBOLISM [None]
